FAERS Safety Report 6471702-0 (Version None)
Quarter: 2009Q4

REPORT INFORMATION
  Report Type: 
  Country: None (occurrence: None)
  Receive Date: 20091203
  Receipt Date: 20080811
  Transmission Date: 20100525
  Serious: Yes (Life-Threatening)
  Sender: FDA-Public Use
  Company Number: CA-ELI_LILLY_AND_COMPANY-CA200803002571

PATIENT
  Sex: Male
  Weight: 34.9 kg

DRUGS (1)
  1. SOMATROPIN [Suspect]
     Indication: GROWTH HORMONE DEFICIENCY
     Dosage: 1 MG, 6/W
     Route: 058
     Dates: start: 20071023, end: 20080305

REACTIONS (1)
  - NEOPLASM RECURRENCE [None]
